FAERS Safety Report 10208732 (Version 1)
Quarter: 2014Q2

REPORT INFORMATION
  Report Type: Spontaneous
  Country: US (occurrence: None)
  Receive Date: 20140529
  Receipt Date: 20140529
  Transmission Date: 20141212
  Serious: Yes (Other)
  Sender: FDA-Public Use
  Company Number: None

PATIENT
  Age: 42 Year
  Sex: Female
  Weight: 72.58 kg

DRUGS (2)
  1. DULOXETINE 120 MG TEVA [Suspect]
     Indication: GENERALISED ANXIETY DISORDER
     Dosage: 60 MG X 2  ORAL
     Route: 048
  2. DULOXETINE 120 MG TEVA [Suspect]
     Indication: DEPRESSION
     Dosage: 60 MG X 2  ORAL
     Route: 048

REACTIONS (6)
  - Hypertension [None]
  - Dizziness [None]
  - Dizziness [None]
  - Balance disorder [None]
  - Depression [None]
  - Anxiety [None]
